FAERS Safety Report 7371494-7 (Version None)
Quarter: 2011Q1

REPORT INFORMATION
  Report Type: 
  Country: None (occurrence: None)
  Receive Date: 20110322
  Receipt Date: 20110322
  Transmission Date: 20110831
  Serious: Yes (Life-Threatening, Hospitalization)
  Sender: FDA-Public Use
  Company Number: None

PATIENT
  Age: 66 Year
  Sex: Female

DRUGS (7)
  1. LORAZEPAM [Concomitant]
  2. OLANZAPINE [Concomitant]
  3. HALOPERIDOL [Suspect]
     Indication: PSYCHOTIC DISORDER
     Dosage: 2 MG BID PO
     Route: 048
     Dates: start: 20110214, end: 20110218
  4. TRAZODONE HCL [Concomitant]
  5. LORAZEPAM [Concomitant]
  6. ZIPRASIDONE 20 MG PFIZER [Suspect]
     Indication: REFUSAL OF TREATMENT BY PATIENT
     Dosage: 20 MG STAT IM
     Route: 030
     Dates: start: 20110222, end: 20110222
  7. ZOLPIDEM [Concomitant]

REACTIONS (15)
  - CATATONIA [None]
  - REFUSAL OF TREATMENT BY PATIENT [None]
  - ABASIA [None]
  - TREMOR [None]
  - EXTRAPYRAMIDAL DISORDER [None]
  - HYPOPHAGIA [None]
  - WHITE BLOOD CELL COUNT INCREASED [None]
  - SKIN WARM [None]
  - ACTIVITIES OF DAILY LIVING IMPAIRED [None]
  - HYPERHIDROSIS [None]
  - URINARY TRACT INFECTION [None]
  - BLOOD PRESSURE FLUCTUATION [None]
  - NEUROLEPTIC MALIGNANT SYNDROME [None]
  - MUSCLE RIGIDITY [None]
  - BODY TEMPERATURE INCREASED [None]
